FAERS Safety Report 6085091-7 (Version None)
Quarter: 2009Q1

REPORT INFORMATION
  Report Type: 
  Country: None (occurrence: None)
  Receive Date: 20090220
  Receipt Date: 20090213
  Transmission Date: 20090719
  Serious: Yes (Hospitalization, Other)
  Sender: FDA-Public Use
  Company Number: US-ASTRAZENECA-2009UW04191

PATIENT
  Age: 13 Year
  Sex: Male

DRUGS (4)
  1. SEROQUEL [Suspect]
     Route: 048
  2. CYMBALTA [Concomitant]
     Indication: ASPERGER'S DISORDER
     Dosage: 90 MG
  3. GEODON [Concomitant]
  4. BENADRYL [Concomitant]

REACTIONS (11)
  - BLOOD CHOLESTEROL INCREASED [None]
  - BLOOD GLUCOSE INCREASED [None]
  - BLOOD TRIGLYCERIDES INCREASED [None]
  - DIABETES MELLITUS [None]
  - FOOD CRAVING [None]
  - IMPULSIVE BEHAVIOUR [None]
  - POLYURIA [None]
  - SELF INJURIOUS BEHAVIOUR [None]
  - SLEEP DISORDER [None]
  - SUICIDAL IDEATION [None]
  - VOMITING [None]
